FAERS Safety Report 24340500 (Version 1)
Quarter: 2024Q3

REPORT INFORMATION
  Report Type: Spontaneous
  Country: GB (occurrence: GB)
  Receive Date: 20240919
  Receipt Date: 20240919
  Transmission Date: 20241016
  Serious: Yes (Other)
  Sender: ABBVIE
  Company Number: GB-ABBVIE-5923403

PATIENT
  Age: 39 Year
  Sex: Male

DRUGS (2)
  1. RISANKIZUMAB [Suspect]
     Active Substance: RISANKIZUMAB
     Indication: Psoriasis
     Route: 058
     Dates: start: 2020
  2. RISANKIZUMAB [Suspect]
     Active Substance: RISANKIZUMAB
     Indication: Rheumatoid arthritis

REACTIONS (2)
  - Joint swelling [Not Recovered/Not Resolved]
  - Arthropathy [Not Recovered/Not Resolved]

NARRATIVE: CASE EVENT DATE: 20240401
